FAERS Safety Report 10360977 (Version 2)
Quarter: 2014Q3

REPORT INFORMATION
  Report Type: Spontaneous
  Country: US (occurrence: FR)
  Receive Date: 20140804
  Receipt Date: 20140804
  Transmission Date: 20150326
  Serious: Yes (Other)
  Sender: FDA-Public Use
  Company Number: FR-PFIZER INC-2014202500

PATIENT
  Age: 75 Year
  Sex: Female

DRUGS (2)
  1. METHYLPREDNISOLONE [Suspect]
     Active Substance: METHYLPREDNISOLONE
     Indication: LICHEN PLANUS
     Dosage: 0.5 MG/KG/DAY
     Route: 048
  2. PLAQUENIL [Suspect]
     Active Substance: HYDROXYCHLOROQUINE SULFATE
     Indication: LICHEN PLANUS
     Dosage: 400 MG/DAY
     Route: 048

REACTIONS (5)
  - Disorientation [Recovered/Resolved]
  - Hallucination, synaesthetic [Recovered/Resolved]
  - Agitation [Recovered/Resolved]
  - Depersonalisation [Recovered/Resolved]
  - Nightmare [Recovered/Resolved]
